FAERS Safety Report 9664261 (Version 2)
Quarter: 2013Q4

REPORT INFORMATION
  Report Type: Report from Study
  Country: BR (occurrence: BR)
  Receive Date: 20131101
  Receipt Date: 20131204
  Transmission Date: 20140711
  Serious: Yes (Other)
  Sender: FDA-Public Use
  Company Number: BR-SA-2013SA109942

PATIENT
  Sex: Male

DRUGS (3)
  1. FABRAZYME [Suspect]
     Indication: FABRY^S DISEASE
     Route: 042
     Dates: start: 20130717
  2. CORTICOSTEROIDS [Concomitant]
     Indication: RENAL TRANSPLANT
  3. TACROLIMUS [Concomitant]
     Indication: RENAL TRANSPLANT

REACTIONS (5)
  - Cardiac disorder [Not Recovered/Not Resolved]
  - Renal failure chronic [Unknown]
  - Swelling [Not Recovered/Not Resolved]
  - Pain in extremity [Not Recovered/Not Resolved]
  - Oedema peripheral [Not Recovered/Not Resolved]
